FAERS Safety Report 12248462 (Version 3)
Quarter: 2016Q2

REPORT INFORMATION
  Report Type: Report from Study
  Country: US (occurrence: US)
  Receive Date: 20160408
  Receipt Date: 20160518
  Transmission Date: 20160815
  Serious: Yes (Hospitalization, Other)
  Sender: FDA-Public Use
  Company Number: US-BAYER-2016-064210

PATIENT
  Age: 59 Year
  Sex: Male
  Weight: 100.9 kg

DRUGS (9)
  1. ZOMETA [Concomitant]
     Active Substance: ZOLEDRONIC ACID
     Indication: PROSTATE CANCER STAGE IV
     Dosage: UNK
  2. XOFIGO [Suspect]
     Active Substance: RADIUM RA-223 DICHLORIDE
     Indication: PROSTATE CANCER STAGE IV
     Dosage: 136.2 ?CI, QD
     Route: 042
     Dates: start: 20160209, end: 20160209
  3. LUPRON [Concomitant]
     Active Substance: LEUPROLIDE ACETATE
     Indication: METASTASES TO BONE
  4. XOFIGO [Suspect]
     Active Substance: RADIUM RA-223 DICHLORIDE
     Indication: METASTASES TO BONE
     Dosage: 136 ?CI, QD
     Route: 042
     Dates: start: 20160304, end: 20160304
  5. XOFIGO [Suspect]
     Active Substance: RADIUM RA-223 DICHLORIDE
     Indication: PROSTATE CANCER STAGE IV
     Dosage: 137.70 UCI, DOSING REGIMEN:ONCE EVERY 28 DAYS
     Dates: start: 20160408, end: 20160408
  6. CASODEX [Concomitant]
     Active Substance: BICALUTAMIDE
     Indication: METASTASES TO BONE
  7. ZOMETA [Concomitant]
     Active Substance: ZOLEDRONIC ACID
     Indication: METASTASES TO BONE
  8. CASODEX [Concomitant]
     Active Substance: BICALUTAMIDE
     Indication: PROSTATE CANCER STAGE IV
     Dosage: UNK
     Dates: start: 2016
  9. LUPRON [Concomitant]
     Active Substance: LEUPROLIDE ACETATE
     Indication: PROSTATE CANCER STAGE IV
     Dosage: UNK
     Dates: start: 2016

REACTIONS (11)
  - Red blood cell count decreased [None]
  - Nausea [Recovering/Resolving]
  - Haematocrit decreased [None]
  - Depression [None]
  - Haemoglobin decreased [None]
  - Vomiting [Recovering/Resolving]
  - Diarrhoea [Recovering/Resolving]
  - Platelet count decreased [None]
  - Bone pain [Recovering/Resolving]
  - Fatigue [None]
  - White blood cell count decreased [None]

NARRATIVE: CASE EVENT DATE: 201602
